FAERS Safety Report 8275334 (Version 3)
Quarter: 2014Q2

REPORT INFORMATION
  Report Type: Report from Study
  Country: AR (occurrence: AR)
  Receive Date: 20111205
  Receipt Date: 20140417
  Transmission Date: 20141212
  Serious: Yes (Death, Life-Threatening, Hospitalization)
  Sender: FDA-Public Use
  Company Number: PHHO2010AR19507

PATIENT
  Age: 73 Year
  Sex: Female
  Weight: 48 kg

DRUGS (3)
  1. AFINITOR [Suspect]
     Indication: METASTATIC GASTRIC CANCER
     Dosage: 10 MG, UNK
     Route: 048
     Dates: start: 20101129, end: 20101229
  2. OMEPRAZOL ^ACYFABRIK^ [Concomitant]
  3. KLOSIDOL [Concomitant]

REACTIONS (5)
  - Pneumonitis [Fatal]
  - Dyspnoea [Fatal]
  - Cough [Fatal]
  - Respiratory arrest [Fatal]
  - Dehydration [Recovered/Resolved]
